FAERS Safety Report 10013863 (Version 1)
Quarter: 2014Q1

REPORT INFORMATION
  Report Type: Spontaneous
  Country: GB (occurrence: GB)
  Receive Date: 20140316
  Receipt Date: 20140316
  Transmission Date: 20141002
  Serious: Yes (Other)
  Sender: FDA-Public Use
  Company Number: GB-MYLANLABS-2014S1004881

PATIENT
  Age: 82 Year
  Sex: Male

DRUGS (1)
  1. TAMSULOSIN [Suspect]
     Dosage: UNKNOWN/D

REACTIONS (1)
  - Pleural effusion [Recovered/Resolved]
